FAERS Safety Report 7829977-9 (Version None)
Quarter: 2011Q4

REPORT INFORMATION
  Report Type: 
  Country: None (occurrence: None)
  Receive Date: 20111021
  Receipt Date: 20110930
  Transmission Date: 20120403
  Serious: Yes (Other)
  Sender: FDA-Public Use
  Company Number: US-BAYER-2011-082110

PATIENT
  Age: 53 Year
  Sex: Female
  Weight: 108.84 kg

DRUGS (2)
  1. DEPO-PROVERA [Concomitant]
     Dosage: UNK
  2. YASMIN [Suspect]
     Indication: PREMENSTRUAL SYNDROME
     Dosage: UNK
     Dates: start: 20021001, end: 20030201

REACTIONS (7)
  - CHOLELITHIASIS [None]
  - INJURY [None]
  - BACK PAIN [None]
  - GALLBLADDER INJURY [None]
  - PAIN [None]
  - GALLBLADDER PAIN [None]
  - WEIGHT INCREASED [None]
